FAERS Safety Report 9068740 (Version 1)
Quarter: 2013Q1

REPORT INFORMATION
  Report Type: Spontaneous
  Country: US (occurrence: None)
  Receive Date: 20130212
  Receipt Date: 20130212
  Transmission Date: 20140127
  Serious: Yes (Death)
  Sender: FDA-Public Use
  Company Number: None

PATIENT
  Age: 54 Year
  Sex: Female

DRUGS (11)
  1. LETAIRIS [Suspect]
     Indication: PULMONARY HYPERTENSION
     Route: 048
     Dates: start: 201301
  2. TEMAZEPAM [Concomitant]
  3. DIGOXIN [Concomitant]
  4. PANTOPRAZOLE [Concomitant]
  5. PIOGLITAZONE [Concomitant]
  6. WARFARIN [Concomitant]
  7. CANDESARTAN-HCTZ [Concomitant]
  8. CLONIDINE [Concomitant]
  9. INSULIN LISPRO [Concomitant]
  10. LISINOPRIL [Concomitant]
  11. ALISKIREN [Concomitant]

REACTIONS (1)
  - Death [None]
